FAERS Safety Report 9201229 (Version 5)
Quarter: 2013Q3

REPORT INFORMATION
  Report Type: Report from Study
  Country: US (occurrence: US)
  Receive Date: 20130401
  Receipt Date: 20130731
  Transmission Date: 20140515
  Serious: Yes (Other)
  Sender: FDA-Public Use
  Company Number: PHEH2013US007099

PATIENT
  Sex: Female
  Weight: 190 kg

DRUGS (8)
  1. TEGRETOL [Suspect]
     Dosage: 200 MG, UNK
  2. TEGRETOL [Suspect]
     Dosage: 5.5 DF(200 MG 2 DF IN MORNING, 1.5 DF IN AFTERNOON AND 2 DF IN NIGHT), DAILY
     Route: 048
  3. TEGRETOL [Suspect]
     Dosage: 400 MG, TID
     Route: 048
  4. TEGRETOL [Suspect]
     Dosage: 5.5 DF(200 MG 2 DF IN MORNING, 1.5 DF IN AFTERNOON AND 2 DF IN NIGHT), DAILY
     Route: 048
  5. DILANTIN [Concomitant]
     Dosage: 3 DF (TWO IN MORNING AND ONE AT NIGHT), DAILY
  6. TRANXENE [Concomitant]
     Indication: ANXIETY
     Dosage: 0.75 MG, PRN
  7. TRANXENE [Concomitant]
     Dosage: 0.75 MG, BID
  8. CLONAZEPAM [Concomitant]
     Dosage: 1 MG, UNK

REACTIONS (8)
  - Complex partial seizures [Unknown]
  - Convulsion [Unknown]
  - Staring [Unknown]
  - Tremor [Unknown]
  - Disorientation [Unknown]
  - Anxiety [Unknown]
  - Stress [Unknown]
  - Nervousness [Unknown]
